FAERS Safety Report 11717089 (Version 1)
Quarter: 2015Q4

REPORT INFORMATION
  Report Type: Report from Study
  Country: JP (occurrence: JP)
  Receive Date: 20151109
  Receipt Date: 20151109
  Transmission Date: 20160304
  Serious: Yes (Death, Hospitalization)
  Sender: FDA-Public Use
  Company Number: JP-EISAI MEDICAL RESEARCH-EC-2015-011860

PATIENT
  Age: 79 Year
  Sex: Female
  Weight: 42 kg

DRUGS (14)
  1. BROTIZOLAM [Concomitant]
     Active Substance: BROTIZOLAM
  2. COCARL [Concomitant]
     Active Substance: ACETAMINOPHEN
  3. HIRUDOID [Concomitant]
     Active Substance: GLYCOSAMINOGLYCANS
  4. LOPEMIN [Concomitant]
     Active Substance: LOPERAMIDE HYDROCHLORIDE
  5. LENVIMA [Suspect]
     Active Substance: LENVATINIB
     Indication: THYROID CANCER
     Route: 048
     Dates: start: 20150928, end: 20151008
  6. DEPAS [Concomitant]
     Active Substance: ETIZOLAM
  7. SENNOSIDE [Concomitant]
     Active Substance: SENNOSIDES
  8. RINDERON V [Concomitant]
     Active Substance: BETAMETHASONE VALERATE
  9. BISON [Concomitant]
  10. CELECOX [Concomitant]
     Active Substance: CELECOXIB
  11. NEXIUM [Concomitant]
     Active Substance: ESOMEPRAZOLE MAGNESIUM
  12. FENTOS [Concomitant]
     Active Substance: FENTANYL
  13. RAYNANON [Concomitant]
  14. AZILVA [Concomitant]
     Active Substance: AZILSARTAN KAMEDOXOMIL

REACTIONS (3)
  - Cardiac failure [Fatal]
  - Impaired healing [Not Recovered/Not Resolved]
  - Device dislocation [Not Recovered/Not Resolved]

NARRATIVE: CASE EVENT DATE: 20151009
